FAERS Safety Report 6081709-3 (Version None)
Quarter: 2009Q1

REPORT INFORMATION
  Report Type: 
  Country: None (occurrence: None)
  Receive Date: 20090126
  Receipt Date: 20080304
  Transmission Date: 20090719
  Serious: Yes (Life-Threatening, Other)
  Sender: FDA-Public Use
  Company Number: WAES 0803USA00863

PATIENT
  Age: 71 Year
  Sex: Female
  Weight: 58.9676 kg

DRUGS (3)
  1. INVANZ [Suspect]
     Indication: DIABETIC FOOT INFECTION
     Dosage: 1 GM/DAILY/IV
     Route: 042
     Dates: start: 20080229, end: 20080304
  2. INVANZ [Suspect]
     Indication: SKIN ULCER
     Dosage: 1 GM/DAILY/IV
     Route: 042
     Dates: start: 20080229, end: 20080304
  3. CLEOCIN [Concomitant]

REACTIONS (2)
  - GRAND MAL CONVULSION [None]
  - RESPIRATORY FAILURE [None]
